FAERS Safety Report 7898621-7 (Version None)
Quarter: 2011Q4

REPORT INFORMATION
  Report Type: 
  Country: None (occurrence: None)
  Receive Date: 20111107
  Receipt Date: 20111107
  Transmission Date: 20120403
  Serious: No
  Sender: FDA-Public Use
  Company Number: None

PATIENT
  Sex: Male
  Weight: 86.182 kg

DRUGS (2)
  1. AVAPRO [Suspect]
     Indication: BLOOD PRESSURE
     Dosage: ?
     Route: 048
     Dates: start: 19850131, end: 19850131
  2. LOSARTAN [Concomitant]
     Indication: BLOOD PRESSURE
     Dosage: LOSARTAN
     Route: 048
     Dates: start: 19850131, end: 20110829

REACTIONS (13)
  - FLATULENCE [None]
  - RECTAL DISCHARGE [None]
  - SCRATCH [None]
  - WOUND [None]
  - SINUSITIS [None]
  - COAGULOPATHY [None]
  - FREQUENT BOWEL MOVEMENTS [None]
  - LACERATION [None]
  - DIARRHOEA [None]
  - SCAB [None]
  - KNEE ARTHROPLASTY [None]
  - FAECAL INCONTINENCE [None]
  - SINUS POLYP [None]
